FAERS Safety Report 6725960-5 (Version None)
Quarter: 2010Q2

REPORT INFORMATION
  Report Type: 
  Country: None (occurrence: None)
  Receive Date: 20100514
  Receipt Date: 20070322
  Transmission Date: 20101027
  Serious: Yes (Other)
  Sender: FDA-Public Use
  Company Number: PHHY2007BR03552

PATIENT
  Sex: Female
  Weight: 79 kg

DRUGS (3)
  1. DIOVAN [Suspect]
     Indication: HYPERTENSION
     Dosage: 160 MG, ONCE/SINGLE
     Route: 048
     Dates: start: 20070321, end: 20070321
  2. ARAVA [Concomitant]
     Indication: RHEUMATOID ARTHRITIS
     Dosage: 1 DF, QD
     Route: 048
  3. HOMEOPATIC PREPARATION [Concomitant]
     Indication: GASTRITIS
     Dosage: 4 DF, BID
     Route: 048

REACTIONS (4)
  - ANGIOEDEMA [None]
  - EYE ALLERGY [None]
  - HYPERSENSITIVITY [None]
  - VERTIGO [None]
